FAERS Safety Report 19705097 (Version 1)
Quarter: 2021Q3

REPORT INFORMATION
  Report Type: Spontaneous
  Country: US (occurrence: US)
  Receive Date: 20210816
  Receipt Date: 20210816
  Transmission Date: 20211014
  Serious: Yes (Other)
  Sender: FDA-Public Use
  Company Number: US-GLAXOSMITHKLINE-US2021GSK170866

PATIENT
  Sex: Female

DRUGS (4)
  1. RANITIDINE. [Suspect]
     Active Substance: RANITIDINE
     Indication: ABDOMINAL DISCOMFORT
     Dosage: 25 MG PRESCRIPTION
     Route: 065
     Dates: start: 198001, end: 198201
  2. RANITIDINE. [Suspect]
     Active Substance: RANITIDINE
     Indication: ABDOMINAL DISCOMFORT
     Dosage: 25 MG
     Route: 065
     Dates: start: 198001, end: 198201
  3. RANITIDINE. [Suspect]
     Active Substance: RANITIDINE
     Dosage: UNKNOWN AT THIS TIME PRESCRIPTION
     Route: 065
     Dates: start: 198001, end: 198201
  4. RANITIDINE. [Suspect]
     Active Substance: RANITIDINE
     Dosage: UNK MG
     Route: 065
     Dates: start: 198001, end: 198201

REACTIONS (1)
  - Colorectal cancer [Unknown]
